FAERS Safety Report 6631425-1 (Version None)
Quarter: 2010Q1

REPORT INFORMATION
  Report Type: 
  Country: None (occurrence: None)
  Receive Date: 20100312
  Receipt Date: 20100304
  Transmission Date: 20100710
  Serious: Yes (Other)
  Sender: FDA-Public Use
  Company Number: US-BAYER-201015960NA

PATIENT
  Sex: Female

DRUGS (3)
  1. YAZ [Suspect]
     Indication: CONTRACEPTION
     Route: 048
  2. YAZ [Suspect]
     Route: 048
     Dates: start: 20100201
  3. DEPO SHOT [Suspect]
     Indication: CONTRACEPTION

REACTIONS (2)
  - HEPATIC FUNCTION ABNORMAL [None]
  - LIVER OPERATION [None]
